FAERS Safety Report 6221736-6 (Version None)
Quarter: 2009Q2

REPORT INFORMATION
  Report Type: 
  Country: None (occurrence: None)
  Receive Date: 20090608
  Receipt Date: 20090526
  Transmission Date: 20091009
  Serious: Yes (Other)
  Sender: FDA-Public Use
  Company Number: 235861J08USA

PATIENT
  Age: 27 Year
  Sex: Female

DRUGS (6)
  1. REBIF [Suspect]
     Indication: MULTIPLE SCLEROSIS
     Dosage: 44 MCG, 3 IN 1 WEEKS, SUBCUTANEOUS
     Route: 058
     Dates: start: 20050511, end: 20080618
  2. REBIF [Suspect]
     Indication: MULTIPLE SCLEROSIS
     Dosage: 44 MCG, 3 IN 1 WEEKS, SUBCUTANEOUS
     Route: 058
     Dates: start: 20090201
  3. LIDODERM [Concomitant]
  4. DRUG TO RELAX MUSCLES (MUSCLE RELAXANTS) [Concomitant]
  5. IRON (IRON) [Concomitant]
  6. NEXIUM [Concomitant]

REACTIONS (4)
  - DRUG EXPOSURE DURING PREGNANCY [None]
  - IDIOPATHIC THROMBOCYTOPENIC PURPURA [None]
  - INDUCED LABOUR [None]
  - PREGNANCY [None]
